FAERS Safety Report 4520217-5 (Version None)
Quarter: 2004Q4

REPORT INFORMATION
  Report Type: 
  Country: None (occurrence: None)
  Receive Date: 20041029
  Receipt Date: 20040709
  Transmission Date: 20050328
  Serious: Yes (Hospitalization)
  Sender: FDA-Public Use
  Company Number: WAES 0404USA02316

PATIENT
  Age: 27 Year
  Sex: Female
  Weight: 83.0083 kg

DRUGS (8)
  1. EMEND [Suspect]
     Indication: PROPHYLAXIS
     Dosage: 125 MG/1X/PO; 80 MG/DAILY/PO; 125 MG/1X/PO; 80 MG/DAILY/PO
     Route: 048
     Dates: start: 20040406, end: 20040406
  2. EMEND [Suspect]
     Indication: PROPHYLAXIS
     Dosage: 125 MG/1X/PO; 80 MG/DAILY/PO; 125 MG/1X/PO; 80 MG/DAILY/PO
     Route: 048
     Dates: start: 20040407, end: 20040408
  3. EMEND [Suspect]
     Indication: PROPHYLAXIS
     Dosage: 125 MG/1X/PO; 80 MG/DAILY/PO; 125 MG/1X/PO; 80 MG/DAILY/PO
     Route: 048
     Dates: start: 20040419, end: 20040419
  4. EMEND [Suspect]
     Indication: PROPHYLAXIS
     Dosage: 125 MG/1X/PO; 80 MG/DAILY/PO; 125 MG/1X/PO; 80 MG/DAILY/PO
     Route: 048
     Dates: start: 20040420, end: 20040421
  5. ADRIAMYCIN PFS [Concomitant]
  6. CYTOXAN [Concomitant]
  7. ZOFRAN [Concomitant]
  8. DEXAMETHASONE [Concomitant]

REACTIONS (4)
  - DYSPHAGIA [None]
  - HYPOAESTHESIA [None]
  - HYPOREFLEXIA [None]
  - PULMONARY EMBOLISM [None]
